FAERS Safety Report 12123133 (Version 1)
Quarter: 2016Q1

REPORT INFORMATION
  Report Type: Spontaneous
  Country: US (occurrence: US)
  Receive Date: 20160227
  Receipt Date: 20160227
  Transmission Date: 20160526
  Serious: Yes (Other)
  Sender: FDA-Public Use
  Company Number: US-ABBVIE-16K-163-1568271-00

PATIENT
  Sex: Male

DRUGS (6)
  1. IMURAN [Suspect]
     Active Substance: AZATHIOPRINE
     Indication: CROHN^S DISEASE
     Route: 065
  2. ALLOPURINOL. [Suspect]
     Active Substance: ALLOPURINOL
     Indication: CROHN^S DISEASE
     Route: 065
  3. PENTASA [Suspect]
     Active Substance: MESALAMINE
     Indication: CROHN^S DISEASE
     Route: 065
  4. PREDNISONE. [Concomitant]
     Active Substance: PREDNISONE
     Indication: PRODUCT USED FOR UNKNOWN INDICATION
  5. HUMIRA [Suspect]
     Active Substance: ADALIMUMAB
     Indication: CROHN^S DISEASE
     Route: 058
  6. IMODIUM [Suspect]
     Active Substance: LOPERAMIDE HYDROCHLORIDE
     Indication: CROHN^S DISEASE
     Route: 065

REACTIONS (9)
  - Sepsis [Unknown]
  - Intestinal perforation [Unknown]
  - Abdominal pain upper [Unknown]
  - Crohn^s disease [Unknown]
  - Frustration tolerance decreased [Unknown]
  - Drug ineffective [Unknown]
  - Diarrhoea [Unknown]
  - Malaise [Unknown]
  - Flatulence [Unknown]
